FAERS Safety Report 4442031-1 (Version None)
Quarter: 2004Q3

REPORT INFORMATION
  Report Type: 
  Country: None (occurrence: None)
  Receive Date: 20040901
  Receipt Date: 20040819
  Transmission Date: 20050211
  Serious: Yes (Death)
  Sender: FDA-Public Use
  Company Number: HQWYE453320AUG04

PATIENT
  Age: 24 Year
  Sex: Male

DRUGS (2)
  1. PRAXITEN (OXAZEPAM, TABLET) [Suspect]
     Dosage: ORAL
     Route: 048
     Dates: start: 20040310, end: 20040310
  2. MORPHINE SULFATE [Suspect]
     Dates: start: 20040310, end: 20040310

REACTIONS (2)
  - BRAIN OEDEMA [None]
  - OVERDOSE [None]
